FAERS Safety Report 23111604 (Version 1)
Quarter: 2023Q4

REPORT INFORMATION
  Report Type: Spontaneous
  Country: US (occurrence: US)
  Receive Date: 20231026
  Receipt Date: 20231026
  Transmission Date: 20240110
  Serious: No
  Sender: FDA-Public Use
  Company Number: US-TEVA-2023-US-2935132

PATIENT
  Age: 48 Year
  Sex: Female

DRUGS (3)
  1. AJOVY [Suspect]
     Active Substance: FREMANEZUMAB-VFRM
     Indication: Migraine
     Dosage: 225/1.5 MG/ML
     Route: 065
     Dates: start: 2023
  2. AJOVY [Suspect]
     Active Substance: FREMANEZUMAB-VFRM
  3. UBRELVY [Concomitant]
     Active Substance: UBROGEPANT
     Indication: Product used for unknown indication
     Route: 065

REACTIONS (4)
  - Sleeve gastrectomy [Unknown]
  - Migraine [Not Recovered/Not Resolved]
  - Therapeutic product effect incomplete [Unknown]
  - Inappropriate schedule of product administration [Unknown]

NARRATIVE: CASE EVENT DATE: 20230101
